FAERS Safety Report 24133176 (Version 1)
Quarter: 2024Q3

REPORT INFORMATION
  Report Type: Spontaneous
  Country: US (occurrence: None)
  Receive Date: 20240724
  Receipt Date: 20240724
  Transmission Date: 20241017
  Serious: Yes (Hospitalization)
  Sender: Public
  Company Number: None

PATIENT
  Age: 70 Year
  Sex: Male
  Weight: 89.8 kg

DRUGS (2)
  1. CARBOPLATIN [Suspect]
     Active Substance: CARBOPLATIN
     Dates: start: 20240506, end: 20240708
  2. ALIMTA [Concomitant]
     Active Substance: PEMETREXED DISODIUM

REACTIONS (11)
  - Nausea [None]
  - Diarrhoea [None]
  - Chest pain [None]
  - Haematemesis [None]
  - Fall [None]
  - Hypophagia [None]
  - Dehydration [None]
  - Tachycardia [None]
  - Leukocytosis [None]
  - Rib fracture [None]
  - Colitis [None]

NARRATIVE: CASE EVENT DATE: 20240712
